FAERS Safety Report 4525059-2 (Version None)
Quarter: 2004Q4

REPORT INFORMATION
  Report Type: 
  Country: None (occurrence: None)
  Receive Date: 20041210
  Receipt Date: 20041129
  Transmission Date: 20050328
  Serious: Yes (Hospitalization)
  Sender: FDA-Public Use
  Company Number: 2004076262

PATIENT
  Sex: Female

DRUGS (5)
  1. NEURONTIN [Suspect]
     Indication: ARTHRITIS
  2. HYDROMORPHONE HCL [Suspect]
     Indication: ILL-DEFINED DISORDER
  3. MORPHINE SULFATE [Suspect]
     Indication: VOMITING
  4. METHOCARBAMOL [Suspect]
     Indication: ILL-DEFINED DISORDER
  5. ROFECOXIB [Suspect]
     Indication: ILL-DEFINED DISORDER

REACTIONS (9)
  - ABDOMINAL PAIN UPPER [None]
  - DRUG INEFFECTIVE [None]
  - INSOMNIA [None]
  - LOSS OF CONSCIOUSNESS [None]
  - MALAISE [None]
  - PAIN [None]
  - PAIN IN EXTREMITY [None]
  - RETCHING [None]
  - VOMITING [None]
